FAERS Safety Report 23287280 (Version 1)
Quarter: 2023Q4

REPORT INFORMATION
  Report Type: Spontaneous
  Country: US (occurrence: US)
  Receive Date: 20231212
  Receipt Date: 20231212
  Transmission Date: 20240109
  Serious: Yes (Death, Other)
  Sender: FDA-Public Use
  Company Number: US-AMGEN-USASP2023218369

PATIENT

DRUGS (2)
  1. ADALIMUMAB [Suspect]
     Active Substance: ADALIMUMAB\ISOPROPYL ALCOHOL
     Indication: Colitis ulcerative
     Dosage: UNK
     Route: 065
  2. INFLIXIMAB [Suspect]
     Active Substance: INFLIXIMAB
     Indication: Colitis ulcerative
     Dosage: UNK
     Route: 065

REACTIONS (19)
  - Death [Fatal]
  - Acute myocardial infarction [Unknown]
  - Ischaemic stroke [Unknown]
  - Cardiac failure [Unknown]
  - Tuberculosis [Unknown]
  - Nocardiosis [Unknown]
  - Clostridium difficile infection [Unknown]
  - Pneumonia legionella [Unknown]
  - Listeriosis [Unknown]
  - Pneumocystis jirovecii pneumonia [Unknown]
  - Aspergillus infection [Unknown]
  - Neoplasm malignant [Unknown]
  - Embolism venous [Unknown]
  - Influenza [Unknown]
  - Papilloma viral infection [Unknown]
  - Candida infection [Unknown]
  - Strongyloidiasis [Unknown]
  - Herpes zoster [Unknown]
  - Treatment failure [Unknown]
